FAERS Safety Report 8252947-6 (Version None)
Quarter: 2012Q2

REPORT INFORMATION
  Report Type: 
  Country: None (occurrence: None)
  Receive Date: 20120402
  Receipt Date: 20111229
  Transmission Date: 20120825
  Serious: No
  Sender: FDA-Public Use
  Company Number: US-ABBOTT-12P-163-0888462-00

PATIENT
  Sex: Male
  Weight: 145.28 kg

DRUGS (2)
  1. BYSTOLIC [Concomitant]
     Indication: BLOOD PRESSURE
  2. ANDROGEL [Suspect]
     Indication: BLOOD TESTOSTERONE DECREASED
     Dates: start: 20090101

REACTIONS (5)
  - SEXUAL DYSFUNCTION [None]
  - MEDICATION RESIDUE [None]
  - PRODUCT PHYSICAL ISSUE [None]
  - DRUG INEFFECTIVE [None]
  - ASTHENIA [None]
